FAERS Safety Report 23621921 (Version 1)
Quarter: 2024Q1

REPORT INFORMATION
  Report Type: Report from Study
  Country: EG (occurrence: EG)
  Receive Date: 20240312
  Receipt Date: 20240312
  Transmission Date: 20240409
  Serious: No
  Sender: FDA-Public Use
  Company Number: EG-SANDOZ-SDZ2024EG026469

PATIENT
  Age: 10 Year
  Sex: Male
  Weight: 36 kg

DRUGS (3)
  1. OMNITROPE [Suspect]
     Active Substance: SOMATROPIN
     Indication: Growth hormone deficiency
     Dosage: 1.3 MG, QD
     Route: 058
     Dates: start: 20210418
  2. CORTISONE [Concomitant]
     Active Substance: CORTISONE
     Indication: Hypothyroidism
     Dosage: 1/2 TABLET AT THE MORNING AND 1/4 TABLET AT THE EVENING
     Route: 048
     Dates: start: 20210418
  3. EUTHYROX [Concomitant]
     Active Substance: LEVOTHYROXINE SODIUM
     Indication: Hypothyroidism
     Dosage: UNK, QD, STRENGTH 50MG
     Route: 048
     Dates: start: 20210418

REACTIONS (5)
  - Medication error [Unknown]
  - Drug dose omission by device [Unknown]
  - Expired device used [Unknown]
  - Multiple use of single-use product [Unknown]
  - Device mechanical issue [Unknown]

NARRATIVE: CASE EVENT DATE: 20230418
